FAERS Safety Report 5719785-7 (Version None)
Quarter: 2008Q2

REPORT INFORMATION
  Report Type: 
  Country: None (occurrence: None)
  Receive Date: 20080423
  Receipt Date: 20070330
  Transmission Date: 20081010
  Serious: Yes (Other)
  Sender: FDA-Public Use
  Company Number: 238796

PATIENT
  Age: 49 Year
  Sex: Male

DRUGS (6)
  1. AVASTIN [Suspect]
     Indication: PANCREATIC CARCINOMA METASTATIC
     Dosage: 430 MG, Q2W
     Dates: start: 20061011
  2. AVASTIN [Suspect]
  3. GEMZAR [Concomitant]
  4. DEXAMETHASONE TAB [Concomitant]
  5. ANZEMET [Concomitant]
  6. NEXIUM [Concomitant]

REACTIONS (1)
  - DEEP VEIN THROMBOSIS [None]
